FAERS Safety Report 6787266-8 (Version None)
Quarter: 2010Q2

REPORT INFORMATION
  Report Type: 
  Country: None (occurrence: None)
  Receive Date: 20100623
  Receipt Date: 20100614
  Transmission Date: 20101027
  Serious: Yes (Other)
  Sender: FDA-Public Use
  Company Number: BR-ABBOTT-10P-020-0627662-00

PATIENT
  Sex: Female
  Weight: 59 kg

DRUGS (3)
  1. HUMIRA [Suspect]
     Indication: SJOGREN'S SYNDROME
     Route: 058
     Dates: start: 20091117
  2. HUMIRA [Suspect]
     Dates: end: 20100525
  3. UNKNOWN [Concomitant]
     Indication: HORMONE REPLACEMENT THERAPY

REACTIONS (3)
  - CONVULSION [None]
  - PARAESTHESIA [None]
  - PRURITUS GENERALISED [None]
